FAERS Safety Report 16988138 (Version 3)
Quarter: 2020Q3

REPORT INFORMATION
  Report Type: Report from Study
  Country: US (occurrence: US)
  Receive Date: 20191104
  Receipt Date: 20200819
  Transmission Date: 20201102
  Serious: Yes (Hospitalization, Other)
  Sender: FDA-Public Use
  Company Number: NVSC2019US022966

PATIENT
  Sex: Male

DRUGS (4)
  1. VORICONAZOLE. [Suspect]
     Active Substance: VORICONAZOLE
     Indication: PRODUCT USED FOR UNKNOWN INDICATION
     Dosage: UNK
     Route: 065
  2. GILTERITINIB [Suspect]
     Active Substance: GILTERITINIB
     Indication: ACUTE MYELOID LEUKAEMIA
     Dosage: 120 MG, QD
     Route: 048
     Dates: start: 20190917
  3. LEVAQUIN [Suspect]
     Active Substance: LEVOFLOXACIN
     Indication: PRODUCT USED FOR UNKNOWN INDICATION
     Dosage: UNK
     Route: 065
  4. GILTERITINIB [Suspect]
     Active Substance: GILTERITINIB
     Dosage: 80 MG, QD
     Route: 048

REACTIONS (10)
  - Pneumonia [Unknown]
  - Wound infection [Recovering/Resolving]
  - Myalgia [Unknown]
  - Fatigue [Unknown]
  - Constipation [Unknown]
  - Oropharyngeal pain [Unknown]
  - Pyrexia [Unknown]
  - Mouth breathing [Unknown]
  - Loss of consciousness [Unknown]
  - Limb injury [Recovering/Resolving]
